FAERS Safety Report 24754874 (Version 1)
Quarter: 2024Q4

REPORT INFORMATION
  Report Type: Spontaneous
  Country: FR (occurrence: FR)
  Receive Date: 20241219
  Receipt Date: 20241219
  Transmission Date: 20250115
  Serious: Yes (Hospitalization, Other)
  Sender: ALEXION PHARMACEUTICALS
  Company Number: None

PATIENT
  Age: 72 Year
  Weight: 63 kg

DRUGS (4)
  1. IMFINZI [Suspect]
     Active Substance: DURVALUMAB
     Indication: Lung neoplasm malignant
     Dosage: 1500 MG
  2. IMFINZI [Suspect]
     Active Substance: DURVALUMAB
     Dosage: 1500 MG
     Route: 042
  3. IMFINZI [Suspect]
     Active Substance: DURVALUMAB
     Dosage: 1500 MG
  4. IMFINZI [Suspect]
     Active Substance: DURVALUMAB
     Dosage: 1500 MG
     Route: 042

REACTIONS (1)
  - Hepatic cytolysis [Recovered/Resolved]
